FAERS Safety Report 16145035 (Version 1)
Quarter: 2019Q2

REPORT INFORMATION
  Report Type: Spontaneous
  Country: US (occurrence: US)
  Receive Date: 20190401
  Receipt Date: 20190401
  Transmission Date: 20190711
  Serious: Yes (Other)
  Sender: FDA-Public Use
  Company Number: None

PATIENT
  Age: 38 Year
  Sex: Female
  Weight: 57.6 kg

DRUGS (1)
  1. LEVOFLOXACIN. [Suspect]
     Active Substance: LEVOFLOXACIN
     Indication: PNEUMONIA
     Dates: start: 20190318, end: 20190323

REACTIONS (5)
  - Muscle spasms [None]
  - Skin sensitisation [None]
  - Limb discomfort [None]
  - Monoplegia [None]
  - Panic attack [None]

NARRATIVE: CASE EVENT DATE: 20190331
